FAERS Safety Report 18579327 (Version 3)
Quarter: 2020Q4

REPORT INFORMATION
  Report Type: Spontaneous
  Country: RU (occurrence: RU)
  Receive Date: 20201204
  Receipt Date: 20201221
  Transmission Date: 20210114
  Serious: Yes (Other)
  Sender: FDA-Public Use
  Company Number: RU-PFIZER INC-2020475164

PATIENT
  Age: 35 Year
  Sex: Male
  Weight: 87 kg

DRUGS (7)
  1. HYDROCORTISONE. [Suspect]
     Active Substance: HYDROCORTISONE
     Dosage: UNK UNK, WEEKLY (IN THE EVENING SPORADICALLY 2-3 TIMES A WEEK)
     Dates: start: 201802
  2. FLUDROCORTISONE [Suspect]
     Active Substance: FLUDROCORTISONE
     Dosage: 0.05 MG (FASTED MORNING), 1X/DAY
     Dates: start: 201802
  3. PREDNISOLONE. [Suspect]
     Active Substance: PREDNISOLONE
     Dosage: 5 MG, 2X/DAY
     Dates: start: 201802
  4. FLUDROCORTISONE [Suspect]
     Active Substance: FLUDROCORTISONE
     Dosage: 0.075 MG, DAILY ((0.05 MG IN THE FASTED MORNING AND 0.025 (1/4 TABLETS) AT 4:00 P.M.)
  5. HYDROCORTISONE. [Suspect]
     Active Substance: HYDROCORTISONE
     Indication: ADRENOGENITAL SYNDROME
     Dosage: 30 MG, DAILY (20 MG IN THE MORNING AND 10 MG BY DAY)
     Dates: start: 201802, end: 201802
  6. FLUDROCORTISONE [Suspect]
     Active Substance: FLUDROCORTISONE
     Indication: ADRENOGENITAL SYNDROME
     Dosage: 100 UG, 1X/DAY
     Dates: start: 201802, end: 201802
  7. PREDNISOLONE. [Suspect]
     Active Substance: PREDNISOLONE
     Indication: ADRENOGENITAL SYNDROME
     Dosage: 7.5 MG, 1X/DAY
     Dates: end: 201802

REACTIONS (3)
  - Obesity [Unknown]
  - Metabolic disorder [Unknown]
  - Short stature [Unknown]

NARRATIVE: CASE EVENT DATE: 2018
